FAERS Safety Report 10381297 (Version 1)
Quarter: 2014Q3

REPORT INFORMATION
  Report Type: Spontaneous
  Country: TR (occurrence: TR)
  Receive Date: 20140813
  Receipt Date: 20140813
  Transmission Date: 20150326
  Serious: Yes (Other)
  Sender: FDA-Public Use
  Company Number: TR-ACTAVIS-2014-17253

PATIENT
  Age: 88 Year
  Sex: Female

DRUGS (1)
  1. PHENYTOIN (AMALLC) [Suspect]
     Active Substance: PHENYTOIN
     Indication: EPILEPSY
     Dosage: 300 MG, DAILY
     Route: 048

REACTIONS (6)
  - Vertigo [Unknown]
  - Dysarthria [Unknown]
  - Drug level above therapeutic [Recovered/Resolved]
  - Dyskinesia [Recovered/Resolved]
  - Ataxia [Recovered/Resolved]
  - Nystagmus [Unknown]
